FAERS Safety Report 13882153 (Version 1)
Quarter: 2017Q3

REPORT INFORMATION
  Report Type: Spontaneous
  Country: CA (occurrence: CA)
  Receive Date: 20170818
  Receipt Date: 20170818
  Transmission Date: 20171127
  Serious: Yes (Hospitalization)
  Sender: FDA-Public Use
  Company Number: CA-TEVA-798427USA

PATIENT
  Age: 94 Year
  Sex: Female

DRUGS (3)
  1. PREDNISONE. [Suspect]
     Active Substance: PREDNISONE
     Indication: RASH ERYTHEMATOUS
     Dosage: 50 MG AND THEN GRADUALLY TAPERED TO 2.5MG
     Route: 048
  2. HYDROXYZINE [Concomitant]
     Active Substance: HYDROXYZINE HYDROCHLORIDE
     Indication: RASH ERYTHEMATOUS
     Route: 048
  3. PREDNISONE. [Suspect]
     Active Substance: PREDNISONE
     Indication: RASH ERYTHEMATOUS
     Dosage: 2.5MG
     Route: 048

REACTIONS (1)
  - Acarodermatitis [Recovering/Resolving]
